FAERS Safety Report 5770227-5 (Version None)
Quarter: 2008Q2

REPORT INFORMATION
  Report Type: 
  Country: None (occurrence: None)
  Receive Date: 20080613
  Receipt Date: 20080426
  Transmission Date: 20081010
  Serious: No
  Sender: FDA-Public Use
  Company Number: US-ABBOTT-08P-163-0449436-00

PATIENT
  Sex: Female

DRUGS (4)
  1. HUMIRA [Suspect]
     Indication: RHEUMATOID ARTHRITIS
     Route: 058
     Dates: start: 20080422
  2. ANTIHYPERTENSIVES [Concomitant]
     Indication: HYPERTENSION
  3. LEFLUNOMIDE [Concomitant]
     Indication: DRUG USE FOR UNKNOWN INDICATION
  4. ANTI-DIABETICS [Concomitant]
     Indication: DIABETES MELLITUS

REACTIONS (3)
  - DRY MOUTH [None]
  - JOINT SWELLING [None]
  - PYREXIA [None]
